FAERS Safety Report 18094368 (Version 2)
Quarter: 2022Q4

REPORT INFORMATION
  Report Type: Spontaneous
  Country: IT (occurrence: IT)
  Receive Date: 20200730
  Receipt Date: 20221021
  Transmission Date: 20230113
  Serious: Yes (Hospitalization)
  Sender: FDA-Public Use
  Company Number: IT-NOVARTISPH-NVSC2020IT210627

PATIENT
  Age: 34 Year
  Sex: Female

DRUGS (5)
  1. METHOTREXATE [Suspect]
     Active Substance: METHOTREXATE
     Indication: Product used for unknown indication
     Dosage: 12 MG, QW
     Route: 048
     Dates: start: 19991201, end: 20030601
  2. INFLIXIMAB [Suspect]
     Active Substance: INFLIXIMAB
     Indication: Product used for unknown indication
     Dosage: 3 MG, QD
     Route: 058
     Dates: start: 20000601, end: 20010601
  3. KINERET [Suspect]
     Active Substance: ANAKINRA
     Indication: Rheumatoid arthritis
     Dosage: 100 MG, QD
     Route: 058
     Dates: start: 20020509, end: 20030609
  4. PANTOPRAZOLE [Concomitant]
     Active Substance: PANTOPRAZOLE
     Indication: Product used for unknown indication
     Dosage: UNK UNK, QOD (EVERY OTHER DAY )
     Route: 065
     Dates: start: 20000505, end: 20010602
  5. PREDNISONE [Concomitant]
     Active Substance: PREDNISONE
     Indication: Product used for unknown indication
     Dosage: UNK UNK, QOD (ONCE EVERY OTHER DAY)
     Route: 065
     Dates: start: 20020605, end: 20030510

REACTIONS (1)
  - Pseudolymphoma [Recovered/Resolved with Sequelae]

NARRATIVE: CASE EVENT DATE: 20021115
